FAERS Safety Report 24976973 (Version 1)
Quarter: 2025Q1

REPORT INFORMATION
  Report Type: Spontaneous
  Country: ES (occurrence: ES)
  Receive Date: 20250217
  Receipt Date: 20250217
  Transmission Date: 20250409
  Serious: Yes (Hospitalization, Other)
  Sender: EPIC PHARM
  Company Number: ES-EPICPHARMA-ES-2025EPCLIT00154

PATIENT
  Age: 32 Year
  Sex: Female

DRUGS (3)
  1. RANITIDINE HYDROCHLORIDE [Suspect]
     Active Substance: RANITIDINE HYDROCHLORIDE
     Indication: Gastrooesophageal reflux disease
     Route: 042
     Dates: start: 202008
  2. RANITIDINE HYDROCHLORIDE [Suspect]
     Active Substance: RANITIDINE HYDROCHLORIDE
     Route: 048
  3. EPINEPHRINE [Suspect]
     Active Substance: EPINEPHRINE
     Indication: Product used for unknown indication
     Route: 030

REACTIONS (3)
  - Kounis syndrome [Recovered/Resolved]
  - Stress cardiomyopathy [Recovered/Resolved]
  - Anaphylactic reaction [Recovered/Resolved]
